FAERS Safety Report 11012789 (Version 1)
Quarter: 2015Q2

REPORT INFORMATION
  Report Type: Spontaneous
  Country: FR (occurrence: None)
  Receive Date: 20150409
  Receipt Date: 20150409
  Transmission Date: 20150821
  Serious: Yes (Hospitalization, Other)
  Sender: FDA-Public Use
  Company Number: FR2015GSK044697

PATIENT
  Age: 60 Year
  Sex: Female

DRUGS (14)
  1. DOXYCYCLINE. [Suspect]
     Active Substance: DOXYCYCLINE
     Indication: ILL-DEFINED DISORDER
     Route: 048
     Dates: start: 20150106, end: 20150206
  2. PAROXETINE HYDROCHLORIDE. [Concomitant]
     Active Substance: PAROXETINE HYDROCHLORIDE
  3. ATARAX (ATARAX (NOS)) [Concomitant]
  4. KIVEXA [Suspect]
     Active Substance: ABACAVIR SULFATE\LAMIVUDINE
     Indication: HIV INFECTION
     Route: 048
     Dates: end: 20150206
  5. ALOE [Suspect]
     Active Substance: ALOE
     Indication: ILL-DEFINED DISORDER
     Dates: start: 20150130, end: 20150206
  6. REYATAZ [Suspect]
     Active Substance: ATAZANAVIR SULFATE
     Indication: HIV INFECTION
     Route: 048
     Dates: end: 20150206
  7. ZYLORIC (ALLOPURINOL) [Concomitant]
     Active Substance: ALLOPURINOL
  8. SEEBRI BREEZHALER (GLYCOPYRRONIUM BROMIDE) [Concomitant]
  9. NISISCO [Suspect]
     Active Substance: HYDROCHLOROTHIAZIDE\VALSARTAN
     Indication: ILL-DEFINED DISORDER
     Route: 048
     Dates: end: 20150206
  10. CALCIUM (CALCIUM) [Suspect]
     Active Substance: CALCIUM
     Indication: ILL-DEFINED DISORDER
     Dates: start: 20150130, end: 20150206
  11. NORVIR [Concomitant]
     Active Substance: RITONAVIR
  12. METFORMIN [Suspect]
     Active Substance: METFORMIN HYDROCHLORIDE
     Indication: ILL-DEFINED DISORDER
  13. PHYTOFOIE [Suspect]
     Active Substance: HERBALS
     Indication: ILL-DEFINED DISORDER
     Dates: start: 20150130, end: 20150206
  14. OSLIF BREEZHALER (INDACATEROL MALEATE) [Concomitant]

REACTIONS (1)
  - Acute kidney injury [None]

NARRATIVE: CASE EVENT DATE: 20150206
